FAERS Safety Report 24673442 (Version 2)
Quarter: 2024Q4

REPORT INFORMATION
  Report Type: Spontaneous
  Country: TW (occurrence: TW)
  Receive Date: 20241128
  Receipt Date: 20241202
  Transmission Date: 20250115
  Serious: Yes (Death, Other)
  Sender: MERCK
  Company Number: TW-009507513-2411TWN010181

PATIENT
  Age: 49 Year
  Sex: Male

DRUGS (1)
  1. LETERMOVIR [Suspect]
     Active Substance: LETERMOVIR
     Indication: Antiviral prophylaxis
     Route: 048

REACTIONS (4)
  - Death [Fatal]
  - Sepsis [Unknown]
  - Cytomegalovirus gastritis [Unknown]
  - Cerebral haemorrhage [Unknown]
